FAERS Safety Report 13374363 (Version 1)
Quarter: 2017Q1

REPORT INFORMATION
  Report Type: Spontaneous
  Country: CA (occurrence: CA)
  Receive Date: 20170327
  Receipt Date: 20170327
  Transmission Date: 20170429
  Serious: Yes (Other)
  Sender: FDA-Public Use
  Company Number: US-ASTRAZENECA-2017SE31425

PATIENT
  Age: 197 Day
  Sex: Male

DRUGS (1)
  1. SYNAGIS [Suspect]
     Active Substance: PALIVIZUMAB
     Indication: ANTIVIRAL PROPHYLAXIS
     Route: 030
     Dates: start: 20170303

REACTIONS (8)
  - Skin discolouration [Unknown]
  - Genital swelling [Unknown]
  - Joint swelling [Unknown]
  - Peripheral coldness [Unknown]
  - Swelling face [Unknown]
  - Irritability [Unknown]
  - Cyanosis [Unknown]
  - Urticaria [Recovered/Resolved]

NARRATIVE: CASE EVENT DATE: 20170306
